FAERS Safety Report 6470711-5 (Version None)
Quarter: 2009Q4

REPORT INFORMATION
  Report Type: 
  Country: None (occurrence: None)
  Receive Date: 20091203
  Receipt Date: 20091130
  Transmission Date: 20100525
  Serious: Yes (Hospitalization)
  Sender: FDA-Public Use
  Company Number: A0832275A

PATIENT
  Age: 19 Year
  Sex: Male

DRUGS (2)
  1. LAMICTAL [Suspect]
     Indication: BIPOLAR DISORDER
     Dosage: 25MG PER DAY
     Route: 048
     Dates: start: 20091106, end: 20091128
  2. NO CONCURRENT MEDICATION [Concomitant]

REACTIONS (5)
  - BURNING SENSATION [None]
  - CHEILITIS [None]
  - DYSPNOEA [None]
  - RASH [None]
  - RASH ERYTHEMATOUS [None]
